FAERS Safety Report 11740153 (Version 2)
Quarter: 2015Q4

REPORT INFORMATION
  Report Type: Spontaneous
  Country: US (occurrence: US)
  Receive Date: 20151110
  Receipt Date: 20151120
  Transmission Date: 20160304
  Serious: No
  Sender: FDA-Public Use
  Company Number: US-ELI_LILLY_AND_COMPANY-US201206008260

PATIENT
  Sex: Female

DRUGS (3)
  1. FORTEO [Suspect]
     Active Substance: TERIPARATIDE
     Dosage: 20 UG, QD
     Route: 065
     Dates: start: 201206
  2. FORTEO [Suspect]
     Active Substance: TERIPARATIDE
     Indication: OSTEOPOROSIS
     Dosage: 20 UG, QD
     Route: 065
     Dates: start: 201205
  3. FORTEO [Suspect]
     Active Substance: TERIPARATIDE
     Dosage: 20 UG, QD
     Route: 065
     Dates: start: 201206

REACTIONS (9)
  - Hot flush [Unknown]
  - Epistaxis [Recovering/Resolving]
  - Injection site swelling [Unknown]
  - Intentional product misuse [Unknown]
  - Micturition urgency [Not Recovered/Not Resolved]
  - Bone pain [Unknown]
  - Urinary incontinence [Unknown]
  - Arthralgia [Unknown]
  - Renal disorder [Unknown]

NARRATIVE: CASE EVENT DATE: 2012
